FAERS Safety Report 7123596-8 (Version None)
Quarter: 2010Q4

REPORT INFORMATION
  Report Type: 
  Country: None (occurrence: None)
  Receive Date: 20101125
  Receipt Date: 20101122
  Transmission Date: 20110411
  Serious: Yes (Death, Hospitalization)
  Sender: FDA-Public Use
  Company Number: DE-BRISTOL-MYERS SQUIBB COMPANY-15207400

PATIENT
  Age: 74 Year
  Sex: Male

DRUGS (5)
  1. TAXOL [Suspect]
     Indication: NON-SMALL CELL LUNG CANCER
     Dosage: 312 MG BATCH NO.: OA58285, 9A4610 4TH CYCLE:DURATION:43D
     Route: 042
     Dates: start: 20100421, end: 20100805
  2. CARBOPLATIN [Suspect]
     Indication: NON-SMALL CELL LUNG CANCER
     Dosage: 4TH CYCLE DURATION:43D
     Route: 042
     Dates: start: 20100421, end: 20100716
  3. CAPROS [Concomitant]
     Indication: PAIN
     Route: 048
     Dates: start: 20100401
  4. NOVAMIN [Concomitant]
     Indication: PAIN
     Dosage: 1 DF=1 GTT
     Route: 048
     Dates: start: 20100401
  5. UNACID [Concomitant]
     Indication: PNEUMONIA
     Route: 048
     Dates: start: 20100331, end: 20100413

REACTIONS (2)
  - GENERAL PHYSICAL HEALTH DETERIORATION [None]
  - MALIGNANT NEOPLASM PROGRESSION [None]
